FAERS Safety Report 9674723 (Version 2)
Quarter: 2013Q4

REPORT INFORMATION
  Report Type: Spontaneous
  Country: KR (occurrence: KR)
  Receive Date: 20131107
  Receipt Date: 20131107
  Transmission Date: 20140711
  Serious: Yes (Hospitalization)
  Sender: FDA-Public Use
  Company Number: KR-JNJFOC-20131019438

PATIENT
  Age: 41 Year
  Sex: Female
  Weight: 61.2 kg

DRUGS (8)
  1. CAELYX [Suspect]
     Indication: OVARIAN CANCER
     Route: 042
     Dates: start: 20130722
  2. EC145 [Suspect]
     Indication: OVARIAN CANCER
     Dosage: DAY 1,3 ,5 ,15, 17,19
     Route: 042
     Dates: start: 20130722
  3. PLACEBO [Suspect]
     Indication: OVARIAN CANCER
     Dosage: DAY 1,3 ,5 ,15, 17,19
     Route: 042
     Dates: start: 20130722
  4. EC20 [Suspect]
     Indication: SINGLE PHOTON EMISSION COMPUTERISED TOMOGRAM
     Route: 042
     Dates: start: 20130709, end: 20130709
  5. FOLIC ACID [Suspect]
     Indication: SINGLE PHOTON EMISSION COMPUTERISED TOMOGRAM
     Route: 042
     Dates: start: 20130709, end: 20130709
  6. FAMOTIDINE [Concomitant]
     Indication: PROPHYLACTIC CHEMOTHERAPY
     Route: 065
     Dates: start: 20130923, end: 20130923
  7. CHLORPHENIRAMINE [Concomitant]
     Indication: PROPHYLACTIC CHEMOTHERAPY
     Route: 065
     Dates: start: 20130923, end: 20130923
  8. PALONOSETRON [Concomitant]
     Indication: PROPHYLACTIC CHEMOTHERAPY
     Route: 065
     Dates: start: 20130923, end: 20130923

REACTIONS (1)
  - Colitis [Recovered/Resolved]
